FAERS Safety Report 9157005 (Version 1)
Quarter: 2013Q1

REPORT INFORMATION
  Report Type: Report from Study
  Country: US (occurrence: US)
  Receive Date: 20130312
  Receipt Date: 20130312
  Transmission Date: 20140127
  Serious: Yes (Hospitalization)
  Sender: FDA-Public Use
  Company Number: US-JNJFOC-20130300996

PATIENT
  Sex: Male
  Weight: 90.72 kg

DRUGS (2)
  1. REMICADE [Suspect]
     Indication: ANKYLOSING SPONDYLITIS
     Route: 042
     Dates: start: 20121024, end: 20121130
  2. METHOTREXATE [Concomitant]
     Dosage: 8 PILLS WEEKLY
     Route: 048
     Dates: start: 201207

REACTIONS (2)
  - Respiratory disorder [Recovered/Resolved]
  - Lung infection [Recovered/Resolved]
